FAERS Safety Report 11725523 (Version 2)
Quarter: 2019Q4

REPORT INFORMATION
  Report Type: Spontaneous
  Country: US (occurrence: US)
  Receive Date: 20151111
  Receipt Date: 20191216
  Transmission Date: 20200122
  Serious: No
  Sender: FDA-Public Use
  Company Number: US-UCBSA-2015025535

PATIENT
  Sex: Female
  Weight: 138 kg

DRUGS (1)
  1. VIMPAT [Suspect]
     Active Substance: LACOSAMIDE
     Indication: SEIZURE
     Dosage: 100 MG/2 DAY (STRENGTH WAS CHANGED TO 50MG)

REACTIONS (1)
  - Feeling jittery [Recovered/Resolved]
